FAERS Safety Report 6509019-8 (Version None)
Quarter: 2009Q4

REPORT INFORMATION
  Report Type: 
  Country: None (occurrence: None)
  Receive Date: 20091221
  Receipt Date: 20090901
  Transmission Date: 20100525
  Serious: No
  Sender: FDA-Public Use
  Company Number: US-ASTRAZENECA-2009SE10861

PATIENT
  Age: 68 Year
  Sex: Female

DRUGS (2)
  1. CRESTOR [Suspect]
     Indication: BLOOD CHOLESTEROL INCREASED
     Route: 048
     Dates: start: 20090715, end: 20090729
  2. CRESTOR [Suspect]
     Route: 048
     Dates: start: 20090730

REACTIONS (3)
  - ALOPECIA [None]
  - MYALGIA [None]
  - STRESS [None]
